FAERS Safety Report 23143627 (Version 1)
Quarter: 2023Q4

REPORT INFORMATION
  Report Type: Report from Study
  Country: JP (occurrence: None)
  Receive Date: 20231103
  Receipt Date: 20231103
  Transmission Date: 20240109
  Serious: Yes (Other)
  Sender: FDA-Public Use
  Company Number: 2023A244416

PATIENT
  Age: 64 Year
  Sex: Female
  Weight: 62 kg

DRUGS (20)
  1. EVUSHELD [Suspect]
     Active Substance: CILGAVIMAB\TIXAGEVIMAB
     Indication: COVID-19 prophylaxis
     Route: 030
     Dates: start: 20230308, end: 20230308
  2. ONCOVIN [Suspect]
     Active Substance: VINCRISTINE SULFATE
     Indication: Acute lymphocytic leukaemia
     Dosage: DOSE UNKNOWN
     Route: 065
     Dates: start: 20230317, end: 20230317
  3. ONCOVIN [Suspect]
     Active Substance: VINCRISTINE SULFATE
     Indication: Acute lymphocytic leukaemia
     Dosage: DOSE UNKNOWN
     Route: 065
     Dates: start: 20230324, end: 20230324
  4. ONCOVIN [Suspect]
     Active Substance: VINCRISTINE SULFATE
     Indication: Acute lymphocytic leukaemia
     Dosage: DOSE UNKNOWN
     Route: 065
     Dates: start: 20230331, end: 20230331
  5. DAUNORUBICIN [Suspect]
     Active Substance: DAUNORUBICIN
     Indication: Acute lymphocytic leukaemia
     Dosage: DOSE UNKNOWN
     Route: 065
     Dates: start: 20230317, end: 20230319
  6. CYCLOPHOSPHAMIDE [Suspect]
     Active Substance: CYCLOPHOSPHAMIDE
     Indication: Acute lymphocytic leukaemia
     Dosage: DOSE UNKNOWN
     Route: 065
     Dates: start: 20230317, end: 20230317
  7. PREDONINE [Suspect]
     Active Substance: PREDNISOLONE
     Indication: Acute lymphocytic leukaemia
     Dosage: DOSE UNKNOWN
     Route: 048
     Dates: start: 20230317, end: 20230329
  8. ASPARAGINASE [Suspect]
     Active Substance: ASPARAGINASE
     Indication: Acute lymphocytic leukaemia
     Dosage: DOSE UNKNOWN
     Route: 065
     Dates: start: 20230325, end: 20230329
  9. ASPARAGINASE [Suspect]
     Active Substance: ASPARAGINASE
     Indication: Acute lymphocytic leukaemia
     Dosage: DOSE UNKNOWN
     Route: 065
     Dates: start: 20230401, end: 20230405
  10. METHOTREXATE [Suspect]
     Active Substance: METHOTREXATE
     Indication: Acute lymphocytic leukaemia
     Dosage: DOSE UNKNOWN
     Route: 065
     Dates: start: 20230316, end: 20230316
  11. GASTER [Concomitant]
     Active Substance: FAMOTIDINE
     Indication: Gastric ulcer
     Dosage: DOSE UNKNOWN
     Route: 048
     Dates: start: 20230310
  12. SULFAMETHOXAZOLE\TRIMETHOPRIM [Concomitant]
     Active Substance: SULFAMETHOXAZOLE\TRIMETHOPRIM
     Indication: Prophylaxis
     Dosage: DOSE UNKNOWN
     Route: 048
     Dates: start: 20230310
  13. FEBUXOSTAT [Concomitant]
     Active Substance: FEBUXOSTAT
     Indication: Hyperuricaemia
     Dosage: DOSE UNKNOWN
     Route: 048
     Dates: start: 20230316
  14. URSO [Concomitant]
     Active Substance: URSODIOL
     Indication: Cholestasis
     Dosage: DOSE UNKNOWN
     Route: 048
     Dates: start: 20230325
  15. GRANISETRON [Concomitant]
     Active Substance: GRANISETRON
     Indication: Prophylaxis
     Dosage: DOSE UNKNOWN
     Route: 065
     Dates: start: 20230317, end: 20230319
  16. GRANISETRON [Concomitant]
     Active Substance: GRANISETRON
     Indication: Prophylaxis
     Dosage: DOSE UNKNOWN
     Route: 065
     Dates: start: 20230324, end: 20230329
  17. GRANISETRON [Concomitant]
     Active Substance: GRANISETRON
     Indication: Prophylaxis
     Dosage: DOSE UNKNOWN
     Route: 065
     Dates: start: 20230331, end: 20230405
  18. HYDROCORTONE [Concomitant]
     Active Substance: HYDROCORTISONE
     Indication: Acute lymphocytic leukaemia
     Dosage: DOSE UNKNOWN
     Route: 065
     Dates: start: 20230325, end: 20230329
  19. HYDROCORTONE [Concomitant]
     Active Substance: HYDROCORTISONE
     Indication: Acute lymphocytic leukaemia
     Dosage: DOSE UNKNOWN
     Route: 065
     Dates: start: 20230401, end: 20230405
  20. DECADRON [Concomitant]
     Active Substance: DEXAMETHASONE
     Indication: Acute lymphocytic leukaemia
     Dosage: DOSE UNKNOWN
     Route: 065
     Dates: start: 20230316, end: 20230316

REACTIONS (3)
  - Anaemia [Recovering/Resolving]
  - Hypofibrinogenaemia [Recovered/Resolved]
  - Platelet count decreased [Recovered/Resolved]

NARRATIVE: CASE EVENT DATE: 20230308
